FAERS Safety Report 10269201 (Version 1)
Quarter: 2014Q2

REPORT INFORMATION
  Report Type: Spontaneous
  Country: DK (occurrence: DK)
  Receive Date: 20140630
  Receipt Date: 20140630
  Transmission Date: 20141212
  Serious: Yes (Hospitalization)
  Sender: FDA-Public Use
  Company Number: PHHY2014DK077801

PATIENT
  Age: 67 Year
  Sex: Male
  Weight: 80 kg

DRUGS (1)
  1. CORODIL [Suspect]
     Indication: HYPERTENSION
     Route: 048
     Dates: start: 20140227, end: 20140413

REACTIONS (1)
  - Hyponatraemic seizure [Recovering/Resolving]
